FAERS Safety Report 8834090 (Version 1)
Quarter: 2012Q4

REPORT INFORMATION
  Report Type: Spontaneous
  Country: US (occurrence: None)
  Receive Date: 20121011
  Receipt Date: 20121011
  Transmission Date: 20130627
  Serious: Yes (Disabling, Other)
  Sender: FDA-Public Use
  Company Number: None

PATIENT
  Age: 56 Year
  Sex: Female
  Weight: 86.18 kg

DRUGS (2)
  1. METHYLPREDNISOLONE [Suspect]
     Indication: ARTHRITIS
     Route: 014
     Dates: start: 20111001, end: 20111101
  2. METHYLPREDNISOLONE [Suspect]
     Dosage: unknown-injected by provider once Intra-articular
one time injection
     Route: 014
     Dates: start: 20111001, end: 20111101

REACTIONS (1)
  - Vasculitis [None]
